FAERS Safety Report 4590430-X (Version None)
Quarter: 2005Q1

REPORT INFORMATION
  Report Type: 
  Country: None (occurrence: None)
  Receive Date: 20050224
  Receipt Date: 20050216
  Transmission Date: 20050727
  Serious: Yes (Other)
  Sender: FDA-Public Use
  Company Number: PHEH2005US02188

PATIENT
  Sex: Female

DRUGS (5)
  1. STARLIX [Suspect]
     Indication: DIABETES MELLITUS
     Dosage: 120 MG; 2 1/2 QD
     Route: 048
     Dates: start: 20020101
  2. DYAZIDE [Concomitant]
  3. SYNTHROID [Concomitant]
  4. ROXICODONE [Concomitant]
  5. XANAX [Concomitant]

REACTIONS (3)
  - DIZZINESS [None]
  - SPINAL OPERATION [None]
  - WEIGHT DECREASED [None]
